FAERS Safety Report 8965925 (Version 1)
Quarter: 2012Q4

REPORT INFORMATION
  Report Type: 
  Country: US (occurrence: US)
  Receive Date: 20121217
  Receipt Date: 20121217
  Transmission Date: 20130627
  Serious: Yes (Other)
  Sender: FDA-Public Use
  Company Number: US-AMGEN-USASP2012079252

PATIENT
  Sex: Female

DRUGS (2)
  1. ENBREL [Suspect]
     Indication: ARTHRITIS
     Dosage: UNK
  2. ENBREL [Suspect]
     Indication: SPONDYLOARTHROPATHY

REACTIONS (1)
  - Hepatic mass [Unknown]
